FAERS Safety Report 18105232 (Version 1)
Quarter: 2020Q3

REPORT INFORMATION
  Report Type: Spontaneous
  Country: US (occurrence: US)
  Receive Date: 20200803
  Receipt Date: 20200803
  Transmission Date: 20201103
  Serious: No
  Sender: FDA-Public Use
  Company Number: US-PERRIGO-19US010081

PATIENT
  Age: 30 Year
  Sex: Female
  Weight: 84.35 kg

DRUGS (3)
  1. SARECYCLINE. [Concomitant]
     Active Substance: SARECYCLINE
     Indication: ACNE
     Dosage: UNK
     Route: 048
     Dates: start: 20190808
  2. CLINDAMYCIN AND BENZOYL PEROXIDE [Suspect]
     Active Substance: BENZOYL PEROXIDE\CLINDAMYCIN PHOSPHATE
     Indication: ACNE
     Dosage: SMALL AMOUNT, EVERY MORNING
     Route: 061
     Dates: start: 20190808, end: 20190815
  3. TRETINOIN. [Concomitant]
     Active Substance: TRETINOIN
     Indication: ACNE
     Dosage: UNK
     Route: 061
     Dates: start: 201904

REACTIONS (2)
  - Inappropriate schedule of product administration [Recovered/Resolved]
  - Condition aggravated [Not Recovered/Not Resolved]

NARRATIVE: CASE EVENT DATE: 20190808
